FAERS Safety Report 7131482-2 (Version None)
Quarter: 2010Q4

REPORT INFORMATION
  Report Type: 
  Country: None (occurrence: None)
  Receive Date: 20101201
  Receipt Date: 20101122
  Transmission Date: 20110411
  Serious: Yes (Other)
  Sender: FDA-Public Use
  Company Number: US-CEPHALON-2010006083

PATIENT
  Sex: Male
  Weight: 75 kg

DRUGS (3)
  1. NUVIGIL [Suspect]
     Indication: FATIGUE
     Route: 048
     Dates: start: 20101114, end: 20101114
  2. WELLBUTRIN [Concomitant]
     Indication: ATTENTION DEFICIT/HYPERACTIVITY DISORDER
  3. ADDERALL 10 [Concomitant]

REACTIONS (27)
  - ANXIETY [None]
  - APHONIA [None]
  - ASTHENIA [None]
  - CHEST DISCOMFORT [None]
  - CHROMATURIA [None]
  - DEHYDRATION [None]
  - DEPRESSED LEVEL OF CONSCIOUSNESS [None]
  - DYSGEUSIA [None]
  - DYSPNOEA [None]
  - HALLUCINATION [None]
  - HYPOAESTHESIA ORAL [None]
  - IRREGULAR SLEEP PHASE [None]
  - IRRITABILITY [None]
  - MOOD SWINGS [None]
  - MUSCLE TWITCHING [None]
  - NAUSEA [None]
  - NIGHT SWEATS [None]
  - OCULAR ICTERUS [None]
  - OROPHARYNGEAL PAIN [None]
  - PALPITATIONS [None]
  - PHARYNGEAL ERYTHEMA [None]
  - POLYURIA [None]
  - SWELLING FACE [None]
  - TINNITUS [None]
  - TONGUE DISCOLOURATION [None]
  - VOMITING [None]
  - YELLOW SKIN [None]
